FAERS Safety Report 23380354 (Version 1)
Quarter: 2024Q1

REPORT INFORMATION
  Report Type: Spontaneous
  Country: RO (occurrence: RO)
  Receive Date: 20240109
  Receipt Date: 20240109
  Transmission Date: 20240410
  Serious: Yes (Hospitalization, Other)
  Sender: FDA-Public Use
  Company Number: RO-CELLTRION INC.-2024RO000141

PATIENT

DRUGS (4)
  1. ADALIMUMAB [Suspect]
     Active Substance: ADALIMUMAB\ISOPROPYL ALCOHOL
     Indication: Rheumatoid arthritis
     Dosage: LAST ADMIN 2022; 40MG/SC/2 WEEKS
     Route: 058
     Dates: start: 201808, end: 2022
  2. UPADACITINIB [Suspect]
     Active Substance: UPADACITINIB
     Indication: Product used for unknown indication
     Dosage: 15 MILLIGRAM
     Route: 048
     Dates: start: 202208
  3. METHOTREXATE [Concomitant]
     Active Substance: METHOTREXATE
     Indication: Product used for unknown indication
     Dosage: 15 MG/SC/WEEK
     Route: 058
     Dates: start: 201511
  4. METHOTREXATE [Concomitant]
     Active Substance: METHOTREXATE
     Dosage: 15 MG/SC/WEEK
     Route: 058
     Dates: start: 202212

REACTIONS (11)
  - Hyperthermia malignant [Unknown]
  - Joint stiffness [Unknown]
  - Pain [Unknown]
  - Renal cell carcinoma [Unknown]
  - Uterine leiomyoma [Unknown]
  - Asthenia [Unknown]
  - Arthralgia [Unknown]
  - Drug ineffective [Unknown]
  - Osteoarthritis [Unknown]
  - Osteoporosis [Unknown]
  - Osteoporosis postmenopausal [Unknown]

NARRATIVE: CASE EVENT DATE: 20200101
